FAERS Safety Report 7918866-7 (Version None)
Quarter: 2011Q4

REPORT INFORMATION
  Report Type: 
  Country: None (occurrence: None)
  Receive Date: 20111116
  Receipt Date: 20111109
  Transmission Date: 20120403
  Serious: Yes (Other)
  Sender: FDA-Public Use
  Company Number: GB-PFIZER INC-2011275211

PATIENT
  Age: 60 Year
  Sex: Male

DRUGS (4)
  1. GEMTUZUMAB OZOGAMICIN [Suspect]
     Dosage: UNK
     Dates: start: 20111012, end: 20111021
  2. DAUNORUBICIN HCL [Suspect]
     Dosage: UNK
     Dates: start: 20111012, end: 20111021
  3. CYTARABINE [Suspect]
     Dosage: UNK
     Dates: start: 20111012, end: 20111021
  4. LESTAURTINIB [Suspect]
     Dosage: UNK
     Dates: start: 20111024, end: 20111028

REACTIONS (3)
  - MELAENA [None]
  - GASTROINTESTINAL HAEMORRHAGE [None]
  - HAEMATEMESIS [None]
